FAERS Safety Report 16941949 (Version 2)
Quarter: 2019Q4

REPORT INFORMATION
  Report Type: Spontaneous
  Country: JP (occurrence: JP)
  Receive Date: 20191021
  Receipt Date: 20191105
  Transmission Date: 20200122
  Serious: Yes (Other)
  Sender: FDA-Public Use
  Company Number: JP-PFIZER INC-2019446861

PATIENT
  Age: 17 Year
  Sex: Male
  Weight: 55 kg

DRUGS (2)
  1. HALCION [Suspect]
     Active Substance: TRIAZOLAM
     Indication: POOR QUALITY SLEEP
     Dosage: 0.25 MG, UNK
  2. HALCION [Suspect]
     Active Substance: TRIAZOLAM
     Indication: INSOMNIA

REACTIONS (10)
  - Seizure [Unknown]
  - Moaning [Unknown]
  - Loss of consciousness [Unknown]
  - Poor quality sleep [Unknown]
  - Agitation [Unknown]
  - Abnormal behaviour [Unknown]
  - Off label use [Unknown]
  - Intentional product use issue [Unknown]
  - Therapeutic response decreased [Unknown]
  - Muscle rigidity [Unknown]
